FAERS Safety Report 8202530-3 (Version None)
Quarter: 2012Q1

REPORT INFORMATION
  Report Type: 
  Country: None (occurrence: None)
  Receive Date: 20120312
  Receipt Date: 20120306
  Transmission Date: 20120608
  Serious: Yes (Life-Threatening, Hospitalization)
  Sender: FDA-Public Use
  Company Number: US-CELGENEUS-163-21660-12030687

PATIENT
  Sex: Male
  Weight: 79.4 kg

DRUGS (38)
  1. CARBOPLATIN [Suspect]
     Route: 041
     Dates: start: 20120217
  2. OXYCODONE/ACETAMINOPHEN [Concomitant]
     Dosage: 5 MILLIGRAM
     Route: 048
     Dates: start: 20120217
  3. SIMVASTATIN [Concomitant]
     Indication: HYPERLIPIDAEMIA
     Dosage: 20 MILLIGRAM
     Route: 048
     Dates: start: 20120210
  4. ZOLPIDEM [Concomitant]
     Dosage: 5 MILLIGRAM
     Route: 065
     Dates: start: 20120306
  5. LORAZEPAM [Concomitant]
     Dosage: 0.5-1 MG
     Route: 048
     Dates: start: 20120305
  6. ZOLEDRONIC ACID [Concomitant]
     Route: 041
     Dates: start: 20120210
  7. ALBUTEROL [Concomitant]
     Dosage: 108
     Route: 055
     Dates: start: 20111129
  8. CIPROFLOXACIN [Concomitant]
     Dosage: 500 MILLIGRAM
     Route: 048
     Dates: start: 20120210, end: 20120306
  9. ENOXAPARIN [Concomitant]
     Dosage: 40 MILLIGRAM
     Route: 065
     Dates: start: 20120306
  10. NYSTATIN [Concomitant]
     Dosage: 500000 IU (INTERNATIONAL UNIT)
     Route: 048
     Dates: start: 20120305
  11. ONDANSETRON [Concomitant]
     Dosage: 4 MILLIGRAM
     Route: 065
     Dates: start: 20120305
  12. CIPROFLOXACIN [Concomitant]
     Route: 041
     Dates: start: 20120303, end: 20120306
  13. BENZOCAINE - MENTHOL [Concomitant]
     Dosage: 15
     Route: 065
     Dates: start: 20120305
  14. ALBUTEROL SULFATE AND IPRATROPIUM BROMIDE [Concomitant]
     Dosage: 2 PUFFS
     Route: 055
     Dates: start: 20111216
  15. ALUM/MAG HYDROX-SIMETHICONE [Concomitant]
     Dosage: 30 MILLILITER
     Route: 065
     Dates: start: 20120305
  16. SODIUM CHLORIDE [Concomitant]
     Dosage: .9 PERCENT
     Route: 041
     Dates: start: 20120303
  17. ABRAXANE [Suspect]
     Dosage: 489 MILLIGRAM
     Route: 065
     Dates: start: 20111216
  18. BUDESONIDE-FORMATEROL [Concomitant]
     Dosage: 2 PUFFS
     Route: 065
     Dates: start: 20120210
  19. MIRALAX [Concomitant]
     Dosage: 17 GRAM
     Route: 065
     Dates: start: 20120305
  20. CALCIUM - VITAMIN D [Concomitant]
     Dosage: 1 TABLET
     Route: 065
     Dates: start: 20111216
  21. AREPITANT [Concomitant]
     Route: 048
     Dates: start: 20111216
  22. CARBOPLATIN [Suspect]
     Dosage: 489 MILLIGRAM
     Route: 041
     Dates: start: 20111216
  23. RBC TRANSFUSION [Concomitant]
     Route: 065
     Dates: start: 20120304
  24. ASPIRIN [Concomitant]
     Indication: CORONARY ARTERY DISEASE
     Dosage: 81 MILLIGRAM
     Route: 065
     Dates: start: 20120306
  25. PLATELETS [Concomitant]
     Dates: start: 20120301
  26. AMOXICILLIN AND CLAVULANATE POTASSIUM [Concomitant]
     Dosage: 875-125
     Route: 048
     Dates: start: 20120210
  27. SIMVASTATIN [Concomitant]
     Dosage: 40 MILLIGRAM
     Route: 048
     Dates: start: 20120306
  28. DOCUSATE [Concomitant]
     Dosage: 100 MILLIGRAM
     Route: 065
     Dates: start: 20120305
  29. NICOTINE [Concomitant]
     Indication: TOBACCO ABUSE
     Dosage: 21 MILLIGRAM
     Route: 065
     Dates: start: 20120304
  30. OMEPRAZOLE [Concomitant]
     Dosage: 20 MILLIGRAM
     Route: 048
     Dates: start: 20111223
  31. NEULASTA [Concomitant]
     Route: 065
     Dates: start: 20120220
  32. NEXIUM [Concomitant]
     Dosage: 20 MILLIGRAM
     Route: 065
     Dates: start: 20120304
  33. GUAFENESIN-CODEINE [Concomitant]
     Dosage: 5 MILLILITER
     Route: 065
     Dates: start: 20120305
  34. ABRAXANE [Suspect]
     Dosage: 489 MILLIGRAM
     Route: 065
     Dates: start: 20120217
  35. SENNA [Concomitant]
     Dosage: 8.6 MILLIGRAM
     Route: 065
     Dates: start: 20120305
  36. LORAZEPAM [Concomitant]
     Dosage: 5-1 MG
     Route: 065
     Dates: start: 20120305
  37. SODIUM CHLORIDE [Concomitant]
     Dosage: .9 PERCENT
     Route: 041
     Dates: start: 20120304
  38. DEXAMETHASONE [Concomitant]
     Dosage: 4 MILLIGRAM
     Route: 048
     Dates: start: 20120303

REACTIONS (1)
  - PNEUMONIA [None]
